FAERS Safety Report 19878975 (Version 6)
Quarter: 2022Q3

REPORT INFORMATION
  Report Type: Report from Study
  Country: US (occurrence: US)
  Receive Date: 20210923
  Receipt Date: 20220713
  Transmission Date: 20221027
  Serious: Yes (Hospitalization, Other)
  Sender: FDA-Public Use
  Company Number: NVSC2021US216667

PATIENT
  Sex: Male

DRUGS (3)
  1. ENTRESTO [Suspect]
     Active Substance: SACUBITRIL\VALSARTAN
     Indication: Product used for unknown indication
     Dosage: 0.5 DOSAGE FORM, BID (24/26 MG)
     Route: 048
     Dates: start: 202107
  2. ENTRESTO [Suspect]
     Active Substance: SACUBITRIL\VALSARTAN
     Dosage: 0.5 DOSAGE FORM, BID (24/26 MG)
     Route: 065
     Dates: start: 202107
  3. METFORMIN [Concomitant]
     Active Substance: METFORMIN HYDROCHLORIDE
     Indication: Product used for unknown indication
     Route: 065

REACTIONS (11)
  - Pneumonia [Recovering/Resolving]
  - Diabetic complication [Recovering/Resolving]
  - Joint swelling [Unknown]
  - Eye irritation [Unknown]
  - Dyspnoea [Unknown]
  - Decreased activity [Unknown]
  - Renal disorder [Unknown]
  - Blood glucose increased [Recovering/Resolving]
  - Localised infection [Recovering/Resolving]
  - Neck pain [Unknown]
  - Wrong technique in product usage process [Not Recovered/Not Resolved]
